FAERS Safety Report 6255724-0 (Version None)
Quarter: 2009Q3

REPORT INFORMATION
  Report Type: 
  Country: None (occurrence: None)
  Receive Date: 20090701
  Receipt Date: 20090618
  Transmission Date: 20100115
  Serious: Yes (Hospitalization, Disabling)
  Sender: FDA-Public Use
  Company Number: DSA_33892_2009

PATIENT
  Age: 76 Year
  Sex: Female

DRUGS (6)
  1. ENALAPRIL MALEATE [Suspect]
     Indication: HYPERTENSION
     Dosage: (20 MG QD ORAL)
     Route: 048
  2. LERCANIDIPINE [Suspect]
     Indication: HYPERTENSION
     Dosage: (DF ORAL)
     Route: 048
  3. LANSOPRAZOLE [Suspect]
     Indication: HIATUS HERNIA
     Dosage: (DF ORAL)
     Route: 048
  4. PAROXETINE HCL [Suspect]
     Indication: DEPRESSION
     Dosage: (DF ORAL)
     Route: 048
  5. NOCTRAN 10 (ACEPRAMAZINE + ACEPROMETAZINE + CLORAZEPATE) (NOT SPECIFIE [Suspect]
     Indication: INSOMNIA
     Dosage: (DF ORAL)
     Route: 048
  6. PIPOBROMAN (PIPOBROMAN ) [Suspect]
     Indication: POLYCYTHAEMIA VERA
     Dosage: (DF ORAL)
     Route: 048

REACTIONS (5)
  - AMYOTROPHIC LATERAL SCLEROSIS [None]
  - MUSCULAR WEAKNESS [None]
  - PAIN IN EXTREMITY [None]
  - PYRAMIDAL TRACT SYNDROME [None]
  - SENSATION OF HEAVINESS [None]
